FAERS Safety Report 5037743-5 (Version None)
Quarter: 2006Q2

REPORT INFORMATION
  Report Type: 
  Country: None (occurrence: None)
  Receive Date: 20060601
  Receipt Date: 20060208
  Transmission Date: 20061013
  Serious: No
  Sender: FDA-Public Use
  Company Number: 2006PV008346

PATIENT
  Age: 39 Year
  Sex: Female
  Weight: 106.1417 kg

DRUGS (5)
  1. BYETTA [Suspect]
     Indication: DIABETES MELLITUS NON-INSULIN-DEPENDENT
     Dosage: 5 MCG; BID; SC
     Route: 058
     Dates: start: 20060207
  2. METFORMIN [Concomitant]
  3. GLIPIZIDE [Concomitant]
  4. STARLIX [Concomitant]
  5. METHYLPREDNISOLONE [Concomitant]

REACTIONS (5)
  - ASTHENIA [None]
  - BLOOD GLUCOSE INCREASED [None]
  - HEADACHE [None]
  - INAPPROPRIATE SCHEDULE OF DRUG ADMINISTRATION [None]
  - MEDICATION ERROR [None]
